FAERS Safety Report 8026254-0 (Version None)
Quarter: 2012Q1

REPORT INFORMATION
  Report Type: 
  Country: None (occurrence: None)
  Receive Date: 20120105
  Receipt Date: 20111122
  Transmission Date: 20120608
  Serious: No
  Sender: FDA-Public Use
  Company Number: US-ABBOTT-11P-163-0876670-00

PATIENT
  Sex: Female
  Weight: 44.038 kg

DRUGS (6)
  1. LEVOTHYROXINE SODIUM [Suspect]
     Indication: HYPOTHYROIDISM
     Dates: start: 20100101
  2. SYNTHROID [Suspect]
     Dosage: 50 MCG FOUR DAYS PER WEEK
     Dates: start: 20090101, end: 20100101
  3. SYNTHROID [Suspect]
     Dosage: 3 DAYS PER WEEK
     Dates: start: 20111105
  4. SYNTHROID [Suspect]
     Dosage: 50 MCG FOUR DAYS PER WEEK
     Dates: start: 20111105
  5. SYNTHROID [Suspect]
     Indication: HYPOTHYROIDISM
     Dates: start: 20090101, end: 20100101
  6. SIMVASTATIN [Concomitant]
     Indication: BLOOD CHOLESTEROL INCREASED

REACTIONS (1)
  - ALOPECIA [None]
